FAERS Safety Report 5346715-2 (Version None)
Quarter: 2007Q2

REPORT INFORMATION
  Report Type: 
  Country: None (occurrence: None)
  Receive Date: 20070604
  Receipt Date: 20070522
  Transmission Date: 20071010
  Serious: Yes (Other)
  Sender: FDA-Public Use
  Company Number: 2007EU001072

PATIENT
  Age: 60 Year
  Sex: Female

DRUGS (3)
  1. VESICARE [Suspect]
     Indication: URINARY INCONTINENCE
     Dosage: 5 MG/D, ORAL
     Route: 048
     Dates: start: 20070429, end: 20070429
  2. DIAZEPAM [Concomitant]
  3. LEVOTHYROXINE SODIUM [Concomitant]

REACTIONS (4)
  - APHASIA [None]
  - DIZZINESS [None]
  - MALAISE [None]
  - PALPITATIONS [None]
